FAERS Safety Report 6518587-1 (Version None)
Quarter: 2009Q4

REPORT INFORMATION
  Report Type: 
  Country: None (occurrence: None)
  Receive Date: 20091228
  Receipt Date: 20091215
  Transmission Date: 20100525
  Serious: Yes (Other)
  Sender: FDA-Public Use
  Company Number: GB-CUBIST-2009S1000575

PATIENT

DRUGS (2)
  1. CUBICIN [Suspect]
     Indication: EXTRADURAL ABSCESS
     Dates: start: 20091109, end: 20091203
  2. CUBICIN [Suspect]
     Dates: start: 20091204

REACTIONS (3)
  - BACK PAIN [None]
  - HYPERAESTHESIA [None]
  - PARAESTHESIA [None]
